FAERS Safety Report 23230699 (Version 1)
Quarter: 2023Q4

REPORT INFORMATION
  Report Type: Spontaneous
  Country: US (occurrence: None)
  Receive Date: 20231125
  Receipt Date: 20231125
  Transmission Date: 20240109
  Serious: Yes (Other)
  Sender: FDA-Public Use
  Company Number: None

PATIENT
  Sex: Female

DRUGS (5)
  1. ORENCIA [Suspect]
     Active Substance: ABATACEPT
     Indication: Rheumatoid arthritis
     Dosage: FREQUENCY : WEEKLY;?
     Route: 058
     Dates: start: 20220823
  2. ORENCIA [Suspect]
     Active Substance: ABATACEPT
     Dosage: OTHER QUANTITY : 1 PEN;?FREQUENCY : WEEKLY;?
     Route: 058
  3. ADVIL [Concomitant]
     Active Substance: IBUPROFEN
  4. PREDNISONE [Concomitant]
  5. TYLENOL [Concomitant]

REACTIONS (4)
  - Pain in extremity [None]
  - Arthralgia [None]
  - Therapy interrupted [None]
  - Surgery [None]
